FAERS Safety Report 10054917 (Version 2)
Quarter: 2014Q2

REPORT INFORMATION
  Report Type: Spontaneous
  Country: CO (occurrence: CO)
  Receive Date: 20140402
  Receipt Date: 20140409
  Transmission Date: 20141212
  Serious: Yes (Death, Other)
  Sender: FDA-Public Use
  Company Number: PHHY2014CO039665

PATIENT
  Age: 37 Year
  Sex: Female
  Weight: 72 kg

DRUGS (3)
  1. AFINITOR [Suspect]
     Indication: BREAST CANCER
     Dosage: 10 MG, QD
     Route: 048
     Dates: start: 20131105
  2. AFINITOR [Suspect]
     Route: 048
  3. CHEMOTHERAPEUTICS [Concomitant]

REACTIONS (4)
  - Malignant neoplasm progression [Fatal]
  - Haemorrhoids [Unknown]
  - Epistaxis [Unknown]
  - Weight decreased [Unknown]
